FAERS Safety Report 21990890 (Version 1)
Quarter: 2023Q1

REPORT INFORMATION
  Report Type: Spontaneous
  Country: US (occurrence: None)
  Receive Date: 20230213
  Receipt Date: 20230213
  Transmission Date: 20230418
  Serious: Yes (Other)
  Sender: FDA-Public Use
  Company Number: None

PATIENT
  Age: 43 Year
  Sex: Female
  Weight: 83.25 kg

DRUGS (5)
  1. SLYND [Suspect]
     Active Substance: DROSPIRENONE
     Indication: Contraception
     Dosage: OTHER QUANTITY : 1 TABLET(S);?
     Route: 048
     Dates: start: 20230205, end: 20230210
  2. Metoprolol 50 mg ER [Concomitant]
  3. Nifidepene 30 mg [Concomitant]
  4. ARMOUR THYROID [Concomitant]
     Active Substance: THYROID, PORCINE
  5. Breztri as needed 160 mcg [Concomitant]

REACTIONS (3)
  - Blood pressure increased [None]
  - Yawning [None]
  - Dizziness postural [None]

NARRATIVE: CASE EVENT DATE: 20230210
